FAERS Safety Report 25242729 (Version 1)
Quarter: 2025Q2

REPORT INFORMATION
  Report Type: Report from Study
  Country: US (occurrence: US)
  Receive Date: 20250427
  Receipt Date: 20250427
  Transmission Date: 20250717
  Serious: Yes (Hospitalization)
  Sender: ABBVIE
  Company Number: US-ABBVIE-6248481

PATIENT
  Age: 59 Year
  Sex: Male
  Weight: 78.471 kg

DRUGS (14)
  1. RINVOQ [Suspect]
     Active Substance: UPADACITINIB
     Indication: Crohn^s disease
     Dosage: FORM STRENGTH: 45 MILLIGRAM
     Route: 048
     Dates: start: 20250124, end: 20250330
  2. RINVOQ [Suspect]
     Active Substance: UPADACITINIB
     Indication: Crohn^s disease
     Dosage: FORM STRENGTH: 45 MILLIGRAM
     Route: 048
     Dates: start: 20250402
  3. ZYRTEC [Concomitant]
     Active Substance: CETIRIZINE HYDROCHLORIDE
     Indication: Multiple allergies
  4. VITAMIN B12 [Concomitant]
     Active Substance: CYANOCOBALAMIN
     Indication: Vitamin supplementation
  5. URSODIOL [Concomitant]
     Active Substance: URSODIOL
     Indication: Biliary tract disorder
  6. REMICADE [Concomitant]
     Active Substance: INFLIXIMAB
     Indication: Crohn^s disease
  7. VITAMIN C [Concomitant]
     Active Substance: ASCORBIC ACID
     Indication: Vitamin supplementation
  8. TADALAFIL [Concomitant]
     Active Substance: TADALAFIL
     Indication: Prostatic disorder
  9. AMOXICILLIN [Concomitant]
     Active Substance: AMOXICILLIN
     Indication: Inflammation
  10. LANSOPRAZOLE [Concomitant]
     Active Substance: LANSOPRAZOLE
     Indication: Antacid therapy
  11. LAMOTRIGINE [Concomitant]
     Active Substance: LAMOTRIGINE
     Indication: Bipolar disorder
  12. VITAMIN B6 [Concomitant]
     Active Substance: PYRIDOXINE HYDROCHLORIDE
     Indication: Vitamin supplementation
  13. MAGNESIUM [Concomitant]
     Active Substance: MAGNESIUM
     Indication: Mineral supplementation
  14. IRON [Concomitant]
     Active Substance: IRON
     Indication: Mineral supplementation

REACTIONS (5)
  - Erosive duodenitis [Recovered/Resolved]
  - Internal haemorrhage [Recovered/Resolved]
  - Duodenal stenosis [Not Recovered/Not Resolved]
  - Arterial rupture [Recovered/Resolved]
  - Haemobilia [Recovered/Resolved]

NARRATIVE: CASE EVENT DATE: 20250330
